FAERS Safety Report 5738624-1 (Version None)
Quarter: 2008Q2

REPORT INFORMATION
  Report Type: 
  Country: None (occurrence: None)
  Receive Date: 20080515
  Receipt Date: 20080505
  Transmission Date: 20081010
  Serious: Yes (Other)
  Sender: FDA-Public Use
  Company Number: PHBS2008JP04474

PATIENT
  Age: 65 Year
  Sex: Male

DRUGS (5)
  1. CYCLOSPORINE [Suspect]
     Indication: STEM CELL TRANSPLANT
     Dosage: 3 MG/KG/DAY
     Route: 065
  2. METHOTREXATE [Concomitant]
  3. IMMUNOGLOBULINS [Concomitant]
     Dosage: 10 G, BIW
  4. FILGRASTIM [Concomitant]
  5. ACYCLOVIR SODIUM [Concomitant]
     Indication: ANTIVIRAL PROPHYLAXIS
     Dosage: 1000 MG/DAY

REACTIONS (10)
  - ACUTE GRAFT VERSUS HOST DISEASE IN LIVER [None]
  - ACUTE GRAFT VERSUS HOST DISEASE IN SKIN [None]
  - ADENOVIRAL HAEMORRHAGIC CYSTITIS [None]
  - BACTERAEMIA [None]
  - CYTOMEGALOVIRUS INFECTION [None]
  - HEPATITIS B [None]
  - HERPES ZOSTER [None]
  - PERICARDIAL EFFUSION [None]
  - SEPTIC SHOCK [None]
  - STOMATITIS [None]
